FAERS Safety Report 4895806-9 (Version None)
Quarter: 2006Q1

REPORT INFORMATION
  Report Type: 
  Country: None (occurrence: None)
  Receive Date: 20060125
  Receipt Date: 20060112
  Transmission Date: 20060701
  Serious: Yes (Hospitalization, Other)
  Sender: FDA-Public Use
  Company Number: HQWYE321013JAN06

PATIENT
  Age: 8 Month
  Sex: Female

DRUGS (1)
  1. CHILDREN'S ADVIL [Suspect]
     Indication: RHINITIS
     Dosage: ORAL
     Route: 048
     Dates: start: 20051001, end: 20051001

REACTIONS (7)
  - ANOREXIA [None]
  - CONDITION AGGRAVATED [None]
  - DARK CIRCLES UNDER EYES [None]
  - DIARRHOEA HAEMORRHAGIC [None]
  - FATIGUE [None]
  - GASTROENTERITIS SALMONELLA [None]
  - RHINITIS [None]
